FAERS Safety Report 6098212-7 (Version None)
Quarter: 2009Q1

REPORT INFORMATION
  Report Type: 
  Country: None (occurrence: None)
  Receive Date: 20090227
  Receipt Date: 20090216
  Transmission Date: 20090719
  Serious: Yes (Hospitalization)
  Sender: FDA-Public Use
  Company Number: BR-GENENTECH-276618

PATIENT
  Age: 30 Year
  Sex: Female

DRUGS (3)
  1. MABTHERA [Suspect]
     Indication: SYSTEMIC LUPUS ERYTHEMATOSUS
     Dosage: 500 MG, UNK
     Route: 042
     Dates: start: 20090123, end: 20090101
  2. PREDNISONE [Concomitant]
     Indication: DRUG USE FOR UNKNOWN INDICATION
     Dosage: UNK
  3. CYCLOSPORINE [Concomitant]
     Indication: DRUG USE FOR UNKNOWN INDICATION
     Dosage: UNK

REACTIONS (4)
  - ANAEMIA [None]
  - BLOOD CREATININE INCREASED [None]
  - ERYTHEMA [None]
  - PYREXIA [None]
